FAERS Safety Report 4700032-X (Version None)
Quarter: 2005Q2

REPORT INFORMATION
  Report Type: 
  Country: None (occurrence: None)
  Receive Date: 20050623
  Receipt Date: 20050609
  Transmission Date: 20051028
  Serious: Yes (Hospitalization, Other)
  Sender: FDA-Public Use
  Company Number: 200411465BCC

PATIENT
  Age: 80 Year
  Sex: Male

DRUGS (9)
  1. ALEVE [Suspect]
     Indication: DEMENTIA ALZHEIMER'S TYPE
     Dosage: BID, ORAL
     Route: 048
     Dates: start: 20010323, end: 20021001
  2. ALEVE [Suspect]
     Indication: DEMENTIA ALZHEIMER'S TYPE
     Dosage: BID, ORAL
     Route: 048
     Dates: start: 20021001, end: 20040305
  3. OCUVITE [Concomitant]
     Indication: PROPHYLAXIS
  4. SYNTHROID [Concomitant]
  5. BETA-CAROTINE [Concomitant]
  6. ZOLOFT [Concomitant]
  7. HYDROXYZINE [Concomitant]
  8. VIAGRA [Concomitant]
  9. VANCOMYCIN [Concomitant]

REACTIONS (6)
  - ABDOMINAL DISCOMFORT [None]
  - ASTHENIA [None]
  - DIVERTICULITIS [None]
  - FALL [None]
  - GASTROINTESTINAL INFECTION [None]
  - MELAENA [None]
